FAERS Safety Report 7730813-X (Version None)
Quarter: 2011Q3

REPORT INFORMATION
  Report Type: 
  Country: None (occurrence: None)
  Receive Date: 20110901
  Receipt Date: 20110901
  Transmission Date: 20111222
  Serious: Yes (Hospitalization)
  Sender: FDA-Public Use
  Company Number: None

PATIENT
  Age: 67 Year
  Sex: Female
  Weight: 57.7 kg

DRUGS (1)
  1. FOSAMAX [Suspect]
     Indication: OSTEOPENIA
     Dosage: FOSAMAX 70 MG WEEKLY ORAL
     Route: 048
     Dates: start: 20020801, end: 20110701

REACTIONS (2)
  - STRESS FRACTURE [None]
  - FEMUR FRACTURE [None]
